FAERS Safety Report 10277116 (Version 1)
Quarter: 2014Q3

REPORT INFORMATION
  Report Type: Spontaneous
  Country: BR (occurrence: BR)
  Receive Date: 20140703
  Receipt Date: 20140703
  Transmission Date: 20150326
  Serious: Yes (Death, Other)
  Sender: FDA-Public Use
  Company Number: BR-AMGEN-BRASP2014048943

PATIENT
  Age: 74 Year
  Sex: Male

DRUGS (1)
  1. NPLATE [Suspect]
     Active Substance: ROMIPLOSTIM
     Indication: IMMUNE THROMBOCYTOPENIC PURPURA
     Dosage: UNK
     Route: 065

REACTIONS (8)
  - Pancreatitis [Fatal]
  - Acute respiratory failure [Unknown]
  - Sepsis [Unknown]
  - Acute respiratory distress syndrome [Unknown]
  - Biliary cirrhosis [Unknown]
  - Renal failure acute [Unknown]
  - Gamma-glutamyltransferase abnormal [Unknown]
  - Iron deficiency anaemia [Unknown]
